FAERS Safety Report 5757932-1 (Version None)
Quarter: 2008Q2

REPORT INFORMATION
  Report Type: 
  Country: None (occurrence: None)
  Receive Date: 20080602
  Receipt Date: 20080602
  Transmission Date: 20081010
  Serious: Yes (Life-Threatening, Disabling)
  Sender: FDA-Public Use
  Company Number: None

PATIENT
  Age: 60 Year
  Sex: Female

DRUGS (1)
  1. WARFARIN SODIUM [Suspect]
     Indication: DEEP VEIN THROMBOSIS
     Dosage: 3 MGS 3 DAYS WEEK PO;  6 MGS 4 DAYS WEEK PO
     Route: 048
     Dates: start: 20031216, end: 20080511

REACTIONS (14)
  - AURICULAR SWELLING [None]
  - BLOOD PRESSURE INCREASED [None]
  - DRUG HYPERSENSITIVITY [None]
  - DRUG INEFFECTIVE [None]
  - EYE SWELLING [None]
  - INTERNATIONAL NORMALISED RATIO DECREASED [None]
  - LOCAL SWELLING [None]
  - OEDEMA PERIPHERAL [None]
  - PAIN [None]
  - PARAESTHESIA [None]
  - PROTHROMBIN TIME SHORTENED [None]
  - RASH [None]
  - SWELLING [None]
  - SWELLING FACE [None]
